FAERS Safety Report 6850369-3 (Version None)
Quarter: 2010Q3

REPORT INFORMATION
  Report Type: 
  Country: None (occurrence: None)
  Receive Date: 20100716
  Receipt Date: 20071012
  Transmission Date: 20110219
  Serious: No
  Sender: FDA-Public Use
  Company Number: US-PFIZER INC-2007087875

PATIENT
  Sex: Female
  Weight: 54.1 kg

DRUGS (5)
  1. CHANTIX [Suspect]
     Indication: SMOKING CESSATION THERAPY
     Dates: start: 20070901
  2. ALPRAZOLAM [Suspect]
     Indication: INSOMNIA
  3. CYMBALTA [Concomitant]
  4. PRILOSEC [Concomitant]
  5. ALEVE (CAPLET) [Concomitant]

REACTIONS (5)
  - FATIGUE [None]
  - FEELING ABNORMAL [None]
  - INSOMNIA [None]
  - NAUSEA [None]
  - PAROSMIA [None]
